FAERS Safety Report 20538017 (Version 1)
Quarter: 2022Q1

REPORT INFORMATION
  Report Type: Spontaneous
  Country: US (occurrence: None)
  Receive Date: 20220302
  Receipt Date: 20220302
  Transmission Date: 20220423
  Serious: No
  Sender: FDA-Public Use
  Company Number: US-ROCHE-2971179

PATIENT
  Sex: Male
  Weight: 11.350 kg

DRUGS (2)
  1. NUTROPIN [Suspect]
     Active Substance: SOMATROPIN
     Indication: Silver-Russell syndrome
     Dosage: DAILY ;ONGOING: UNKNOWN
     Route: 065
     Dates: start: 2019
  2. NUTROPIN [Suspect]
     Active Substance: SOMATROPIN

REACTIONS (5)
  - Product dose omission issue [Unknown]
  - Off label use [Unknown]
  - Liquid product physical issue [Unknown]
  - Product quality issue [Unknown]
  - No adverse event [Unknown]

NARRATIVE: CASE EVENT DATE: 20190101
